FAERS Safety Report 16977333 (Version 2)
Quarter: 2019Q4

REPORT INFORMATION
  Report Type: Report from Study
  Country: DE (occurrence: DE)
  Receive Date: 20191031
  Receipt Date: 20191113
  Transmission Date: 20200122
  Serious: Yes (Hospitalization)
  Sender: FDA-Public Use
  Company Number: DE-AMGEN-DEUNI2019178627

PATIENT
  Age: 56 Year
  Sex: Male
  Weight: 117 kg

DRUGS (67)
  1. FLUOROURACIL. [Suspect]
     Active Substance: FLUOROURACIL
     Dosage: 925 MILLIGRAM
     Route: 040
     Dates: start: 20190527
  2. FLUOROURACIL. [Suspect]
     Active Substance: FLUOROURACIL
     Dosage: 5450 MILLIGRAM
     Route: 042
     Dates: start: 20190429
  3. GRANISETRON ACTAVIS [Concomitant]
     Indication: PROPHYLACTIC CHEMOTHERAPY
     Dosage: 1-2 MILLIGRAM CYCLICAL
     Route: 048
     Dates: start: 20181022
  4. ERYTHROMYCIN. [Concomitant]
     Active Substance: ERYTHROMYCIN
     Indication: PROPHYLAXIS
     Dosage: 1 UNK, AS NECESSARY
     Route: 061
     Dates: start: 20181214
  5. LIQUIFILM [Concomitant]
     Indication: PROPHYLAXIS
     Dosage: 1 UNK, AS NECESSARY
     Route: 061
     Dates: start: 20181214
  6. ERYTHROMYCINUM [ERYTHROMYCIN] [Concomitant]
     Indication: RASH
     Dosage: 1 UNK, AS NECESSARY
     Route: 061
     Dates: start: 20190306
  7. POLYSORBATE 20. [Concomitant]
     Active Substance: POLYSORBATE 20
     Indication: RASH
     Dosage: 1 UNK, AS NECESSARY
     Route: 061
     Dates: start: 20190328
  8. HYLO-VISION [Concomitant]
     Active Substance: HYALURONATE SODIUM
     Indication: EYE DISORDER PROPHYLAXIS
     Dosage: 1 UNK, BID
     Route: 061
     Dates: start: 20190729
  9. FOLINIC ACID [Suspect]
     Active Substance: LEUCOVORIN
     Dosage: 900 MILLIGRAM
     Route: 065
     Dates: start: 20190429
  10. FLUOROURACIL. [Suspect]
     Active Substance: FLUOROURACIL
     Dosage: 925 MILLIGRAM
     Route: 040
     Dates: start: 20190401
  11. FLUOROURACIL. [Suspect]
     Active Substance: FLUOROURACIL
     Dosage: 5500 MILLIGRAM
     Route: 040
     Dates: start: 20190902
  12. OXALIPLATIN. [Suspect]
     Active Substance: OXALIPLATIN
     Indication: COLORECTAL CANCER METASTATIC
     Dosage: 195 MILLIGRAM
     Route: 065
     Dates: start: 20181119
  13. OXALIPLATIN. [Suspect]
     Active Substance: OXALIPLATIN
     Dosage: 150 MILLIGRAM
     Route: 065
     Dates: start: 20190320
  14. ALLOPURINOL RATIOPHARM [Concomitant]
     Active Substance: ALLOPURINOL
     Indication: BLOOD URIC ACID INCREASED
     Dosage: 150 MILLIGRAM, QD
     Route: 048
     Dates: start: 19980615
  15. PANITUMUMAB [Suspect]
     Active Substance: PANITUMUMAB
     Dosage: 490 MILLIGRAM
     Route: 042
     Dates: start: 20190916
  16. PANITUMUMAB [Suspect]
     Active Substance: PANITUMUMAB
     Dosage: 440 MILLIGRAM
     Route: 042
     Dates: start: 20191014
  17. FOLINIC ACID [Suspect]
     Active Substance: LEUCOVORIN
     Indication: COLORECTAL CANCER METASTATIC
     Dosage: 920 MILLIGRAM
     Route: 065
     Dates: start: 20181119
  18. FOLINIC ACID [Suspect]
     Active Substance: LEUCOVORIN
     Dosage: 920 MILLIGRAM
     Route: 065
     Dates: start: 20181217
  19. FOLINIC ACID [Suspect]
     Active Substance: LEUCOVORIN
     Dosage: 700 MILLIGRAM
     Route: 065
     Dates: start: 20190320
  20. FOLINIC ACID [Suspect]
     Active Substance: LEUCOVORIN
     Dosage: 920 MILLIGRAM
     Route: 065
     Dates: start: 20190527
  21. FLUOROURACIL. [Suspect]
     Active Substance: FLUOROURACIL
     Dosage: 5500 MILLIGRAM
     Route: 042
     Dates: start: 20181119
  22. FLUOROURACIL. [Suspect]
     Active Substance: FLUOROURACIL
     Dosage: 5500 MILLIGRAM
     Route: 042
     Dates: start: 20190916
  23. OXALIPLATIN. [Suspect]
     Active Substance: OXALIPLATIN
     Dosage: 195 MILLIGRAM
     Route: 065
     Dates: start: 20190401
  24. OXALIPLATIN. [Suspect]
     Active Substance: OXALIPLATIN
     Dosage: 190 MILLIGRAM
     Route: 065
     Dates: start: 20190429
  25. VELMETIA [Concomitant]
     Active Substance: METFORMIN\SITAGLIPTIN
     Indication: DIABETES MELLITUS
     Dosage: 1000 MILLIGRAM, QD, BID
     Route: 048
     Dates: start: 20120615
  26. DOXYCYCLIN RATIOPHARM [Concomitant]
     Indication: PROPHYLAXIS
     Dosage: 100 MILLIGRAM, BID
     Route: 048
     Dates: start: 20181214
  27. CELESTAN [BETAMETHASONE] [Concomitant]
     Indication: PROPHYLAXIS
     Dosage: 100 MILLIGRAM, AS NECESSARY
     Route: 061
     Dates: start: 20190304
  28. RAMILICH [Concomitant]
     Active Substance: RAMIPRIL
     Indication: HYPERTENSION
     Dosage: 5 MILLIGRAM, QD
     Route: 048
     Dates: start: 20100615, end: 20190420
  29. AMLODIPIN RATIOPHARM [Concomitant]
     Indication: HYPERTENSION
     Dosage: 5 MILLIGRAM, QD
     Route: 048
     Dates: start: 20100615, end: 20190420
  30. PANITUMUMAB [Suspect]
     Active Substance: PANITUMUMAB
     Indication: COLORECTAL CANCER METASTATIC
     Dosage: 700 MILLIGRAM
     Route: 042
     Dates: start: 20181119
  31. PANITUMUMAB [Suspect]
     Active Substance: PANITUMUMAB
     Dosage: 700 MILLIGRAM
     Route: 042
     Dates: start: 20190401
  32. PANITUMUMAB [Suspect]
     Active Substance: PANITUMUMAB
     Dosage: 470 MILLIGRAM
     Route: 042
     Dates: start: 20190701
  33. FOLINIC ACID [Suspect]
     Active Substance: LEUCOVORIN
     Dosage: 930 MILLIGRAM
     Route: 065
     Dates: start: 20190617
  34. FOLINIC ACID [Suspect]
     Active Substance: LEUCOVORIN
     Dosage: 900 MILLIGRAM
     Route: 065
     Dates: start: 20191014
  35. FLUOROURACIL. [Suspect]
     Active Substance: FLUOROURACIL
     Dosage: 5600 MILLIGRAM
     Route: 042
     Dates: start: 20190401
  36. ALLOPURINOL RATIOPHARM [Concomitant]
     Active Substance: ALLOPURINOL
     Indication: PROPHYLAXIS
  37. DOXYCYCLIN [DOXYCYCLINE] [Concomitant]
     Active Substance: DOXYCYCLINE
     Indication: RASH
     Dosage: 100 MILLIGRAM, BID
     Route: 048
     Dates: start: 20190315
  38. METRONIDAZOLUM [Concomitant]
     Indication: RASH
     Dosage: 1 UNK, AS NECESSARY
     Route: 061
     Dates: start: 20190328
  39. AMLODIPIN RATIOPHARM [Concomitant]
     Indication: PROPHYLAXIS
  40. BETAGALEN [Concomitant]
     Indication: RASH
     Dosage: 0.1 UNK, AS NECESSARY
     Route: 061
     Dates: start: 20190527
  41. PANITUMUMAB [Suspect]
     Active Substance: PANITUMUMAB
     Dosage: 640 MILLIGRAM
     Route: 042
     Dates: start: 20190513
  42. PANITUMUMAB [Suspect]
     Active Substance: PANITUMUMAB
     Dosage: 500 MILLIGRAM
     Route: 042
     Dates: start: 20190819
  43. PANITUMUMAB [Suspect]
     Active Substance: PANITUMUMAB
     Dosage: 480 MILLIGRAM
     Route: 042
     Dates: start: 20190930
  44. FLUOROURACIL. [Suspect]
     Active Substance: FLUOROURACIL
     Dosage: 700 MILLIGRAM
     Route: 040
     Dates: start: 20190320
  45. FLUOROURACIL. [Suspect]
     Active Substance: FLUOROURACIL
     Dosage: 900 MILLIGRAM
     Route: 040
     Dates: start: 20190429
  46. FLUOROURACIL. [Suspect]
     Active Substance: FLUOROURACIL
     Dosage: 925 MILLIGRAM
     Route: 040
     Dates: start: 20190916
  47. FLUOROURACIL. [Suspect]
     Active Substance: FLUOROURACIL
     Dosage: 4300 MILLIGRAM
     Route: 042
     Dates: start: 20190320
  48. FLUOROURACIL. [Suspect]
     Active Substance: FLUOROURACIL
     Dosage: 925 MILLIGRAM
     Route: 042
     Dates: start: 20190902
  49. GRANISETRON B. BRAUN [Concomitant]
     Active Substance: GRANISETRON HYDROCHLORIDE
     Indication: PROPHYLACTIC CHEMOTHERAPY
     Dosage: 1 MILLIGRAM, CYCLICAL
     Route: 042
     Dates: start: 20181022
  50. LANTUS [Concomitant]
     Active Substance: INSULIN GLARGINE
     Indication: DIABETES MELLITUS
     Dosage: 6 UNK, QD
     Route: 058
     Dates: start: 20190115
  51. RAMILICH [Concomitant]
     Active Substance: RAMIPRIL
     Indication: PROPHYLAXIS
  52. PANITUMUMAB [Suspect]
     Active Substance: PANITUMUMAB
     Dosage: 370 MILLIGRAM
     Route: 042
     Dates: start: 20190320
  53. PANITUMUMAB [Suspect]
     Active Substance: PANITUMUMAB
     Dosage: 460 MILLIGRAM
     Route: 042
     Dates: start: 20190527
  54. PANITUMUMAB [Suspect]
     Active Substance: PANITUMUMAB
     Dosage: 480 MILLIGRAM
     Route: 042
     Dates: start: 20190902
  55. FOLINIC ACID [Suspect]
     Active Substance: LEUCOVORIN
     Dosage: 195 MILLIGRAM
     Route: 065
     Dates: start: 20181203
  56. FLUOROURACIL. [Suspect]
     Active Substance: FLUOROURACIL
     Dosage: 900 MILLIGRAM
     Route: 040
     Dates: start: 20191014
  57. FLUOROURACIL. [Suspect]
     Active Substance: FLUOROURACIL
     Dosage: 5500 MILLIGRAM
     Route: 042
     Dates: start: 20190527
  58. METFORMIN [Concomitant]
     Active Substance: METFORMIN HYDROCHLORIDE
     Indication: DIABETES MELLITUS
     Dosage: 50-1000 MILLIGRAM, BID
  59. DEXAMETHASON JENAPHARM [Concomitant]
     Active Substance: DEXAMETHASONE
     Indication: PROPHYLACTIC CHEMOTHERAPY
     Dosage: 4-8 MILLIGRAM, CYCLICAL
     Dates: start: 20181022
  60. FOLINIC ACID [Suspect]
     Active Substance: LEUCOVORIN
     Dosage: 930 MILLIGRAM
     Route: 065
     Dates: start: 20190401
  61. FLUOROURACIL. [Suspect]
     Active Substance: FLUOROURACIL
     Dosage: 5400 MILLIGRAM
     Route: 042
     Dates: start: 20191014
  62. FOLINIC ACID [Suspect]
     Active Substance: LEUCOVORIN
     Dosage: 920 MILLIGRAM
     Route: 065
     Dates: start: 20190701
  63. FLUOROURACIL. [Suspect]
     Active Substance: FLUOROURACIL
     Indication: COLORECTAL CANCER METASTATIC
     Dosage: 925 MILLIGRAM
     Route: 040
     Dates: start: 20181119
  64. CLINDAMYCIN RATIOPHARM [Concomitant]
     Active Substance: CLINDAMYCIN PHOSPHATE
     Indication: PROPHYLAXIS
     Dosage: 600 MILLIGRAM, TID
     Route: 048
     Dates: start: 20181119, end: 20181201
  65. METRONIDAZOLE [METRONIDAZOLE SODIUM] [Concomitant]
     Indication: SKIN DISORDER PROPHYLAXIS
     Dosage: 1 MILLIGRAM, AS NECESSARY
     Route: 061
     Dates: start: 20190218
  66. CALCIUM D3 [Concomitant]
     Active Substance: CALCIUM\CHOLECALCIFEROL
     Indication: PROPHYLAXIS
     Dosage: 500 MILLIGRAM, BID
     Route: 048
     Dates: start: 20190418
  67. FORTIMEL [Concomitant]
     Active Substance: DIETARY SUPPLEMENT
     Indication: PROPHYLAXIS
     Dosage: 1 UNK, TID
     Route: 048
     Dates: start: 20191014

REACTIONS (1)
  - Functional gastrointestinal disorder [Recovering/Resolving]

NARRATIVE: CASE EVENT DATE: 20191022
